FAERS Safety Report 5948282-9 (Version None)
Quarter: 2008Q4

REPORT INFORMATION
  Report Type: 
  Country: None (occurrence: None)
  Receive Date: 20081111
  Receipt Date: 20081104
  Transmission Date: 20090506
  Serious: Yes (Other)
  Sender: FDA-Public Use
  Company Number: US-ELI_LILLY_AND_COMPANY-US200811000546

PATIENT
  Sex: Female

DRUGS (13)
  1. HUMALOG [Suspect]
     Dosage: UNK, UNK
     Dates: start: 20050101
  2. HUMULIN 70/30 [Suspect]
  3. EVISTA [Suspect]
     Indication: OSTEOPOROSIS
  4. LASIX [Concomitant]
     Indication: HYPERTENSION
  5. VICODIN [Concomitant]
  6. DIOVAN [Concomitant]
     Indication: HYPERTENSION
  7. CRESTOR [Concomitant]
  8. POTASSIUM CHLORIDE [Concomitant]
  9. ADVAIR DISKUS 100/50 [Concomitant]
  10. NITROGLYCERIN [Concomitant]
  11. METOPROLOL TARTRATE [Concomitant]
     Indication: HYPERTENSION
  12. PROTOPIC [Concomitant]
  13. DILANTIN [Concomitant]

REACTIONS (8)
  - CATARACT [None]
  - COLOSTOMY [None]
  - DIABETIC NEPHROPATHY [None]
  - EYE ALLERGY [None]
  - MENINGIOMA [None]
  - OSTEOPOROSIS [None]
  - RENAL IMPAIRMENT [None]
  - VISUAL ACUITY REDUCED [None]
